FAERS Safety Report 8267582-3 (Version None)
Quarter: 2012Q2

REPORT INFORMATION
  Report Type: 
  Country: None (occurrence: None)
  Receive Date: 20120409
  Receipt Date: 20120327
  Transmission Date: 20120825
  Serious: Yes (Hospitalization, Other)
  Sender: FDA-Public Use
  Company Number: US-ELI_LILLY_AND_COMPANY-US201202008465

PATIENT
  Age: 77 Year
  Sex: Female

DRUGS (8)
  1. LORAZEPAM [Concomitant]
  2. PROPYLTHIOURACIL [Concomitant]
  3. PREMARIN [Concomitant]
  4. CYMBALTA [Suspect]
     Indication: MAJOR DEPRESSION
     Dosage: 60 MG, EACH MORNING
     Route: 048
     Dates: start: 20111214, end: 20120222
  5. LEVOTHYROXINE SODIUM [Concomitant]
  6. LUNESTA [Concomitant]
  7. CYMBALTA [Suspect]
     Dosage: 60 MG, EACH MORNING
     Route: 048
     Dates: start: 20120306
  8. PROPRANOLOL [Concomitant]

REACTIONS (2)
  - LEUKOCYTOCLASTIC VASCULITIS [None]
  - URTICARIA [None]
